FAERS Safety Report 18063854 (Version 1)
Quarter: 2020Q3

REPORT INFORMATION
  Report Type: Spontaneous
  Country: US (occurrence: US)
  Receive Date: 20200723
  Receipt Date: 20200723
  Transmission Date: 20201103
  Serious: No
  Sender: FDA-Public Use
  Company Number: US-JNJFOC-20200731137

PATIENT

DRUGS (1)
  1. TYLENOL [Suspect]
     Active Substance: ACETAMINOPHEN
     Indication: BURSITIS
     Dosage: 2 OR 3 TIMES A WEEK IN VERY SMALL DOSES
     Route: 065

REACTIONS (1)
  - Rash [Unknown]
